FAERS Safety Report 19749853 (Version 1)
Quarter: 2021Q3

REPORT INFORMATION
  Report Type: Spontaneous
  Country: ES (occurrence: ES)
  Receive Date: 20210826
  Receipt Date: 20210826
  Transmission Date: 20211014
  Serious: Yes (Hospitalization, Other)
  Sender: FDA-Public Use
  Company Number: ES-SA-2021SA278703

PATIENT
  Age: 66 Year
  Sex: Female
  Weight: 87 kg

DRUGS (1)
  1. LANTUS [Suspect]
     Active Substance: INSULIN GLARGINE
     Indication: TYPE 2 DIABETES MELLITUS
     Dosage: UNK
     Route: 058
     Dates: end: 2021

REACTIONS (16)
  - Hypertension [Recovering/Resolving]
  - Confusional state [Recovering/Resolving]
  - Arthralgia [Recovering/Resolving]
  - Gait disturbance [Recovering/Resolving]
  - Nausea [Recovering/Resolving]
  - Somnolence [Recovering/Resolving]
  - Cerebrovascular accident [Recovering/Resolving]
  - Toxicity to various agents [Recovering/Resolving]
  - Insulin resistance [Recovering/Resolving]
  - Thrombosis [Recovered/Resolved with Sequelae]
  - Cerebral amyloid angiopathy [Recovering/Resolving]
  - Disorientation [Recovering/Resolving]
  - Malaise [Recovering/Resolving]
  - Vomiting [Recovering/Resolving]
  - Apathy [Recovering/Resolving]
  - Listless [Recovering/Resolving]

NARRATIVE: CASE EVENT DATE: 2019
